FAERS Safety Report 12740208 (Version 1)
Quarter: 2016Q3

REPORT INFORMATION
  Report Type: Spontaneous
  Country: US (occurrence: US)
  Receive Date: 20160913
  Receipt Date: 20160913
  Transmission Date: 20161109
  Serious: Yes (Other)
  Sender: FDA-Public Use
  Company Number: US-GLAXOSMITHKLINE-US2016132127

PATIENT
  Age: 49 Year
  Sex: Male

DRUGS (3)
  1. TANZEUM [Suspect]
     Active Substance: ALBIGLUTIDE
     Indication: DIABETES MELLITUS
     Dosage: 30 MG, VA
     Route: 042
     Dates: start: 20160720
  2. ACETAMINOPHEN. [Concomitant]
     Active Substance: ACETAMINOPHEN
  3. TUMS [Concomitant]
     Active Substance: CALCIUM CARBONATE

REACTIONS (3)
  - Abdominal pain upper [Not Recovered/Not Resolved]
  - Pancreatitis acute [Not Recovered/Not Resolved]
  - Back pain [Not Recovered/Not Resolved]

NARRATIVE: CASE EVENT DATE: 20160825
